FAERS Safety Report 23681216 (Version 1)
Quarter: 2024Q1

REPORT INFORMATION
  Report Type: Spontaneous
  Country: FR (occurrence: FR)
  Receive Date: 20240328
  Receipt Date: 20240328
  Transmission Date: 20240409
  Serious: Yes (Death, Life-Threatening, Other)
  Sender: FDA-Public Use
  Company Number: FR-CELLTRION INC.-2024FR007242

PATIENT

DRUGS (11)
  1. TRUXIMA [Suspect]
     Active Substance: RITUXIMAB-ABBS
     Indication: B-cell lymphoma
     Dosage: 250 MG
     Route: 042
     Dates: start: 20201112, end: 20201112
  2. GEMCITABINE HYDROCHLORIDE [Suspect]
     Active Substance: GEMCITABINE HYDROCHLORIDE
     Indication: B-cell lymphoma
     Dosage: 60 MG
     Route: 042
     Dates: start: 20201112, end: 20201112
  3. OXALIPLATIN [Suspect]
     Active Substance: OXALIPLATIN
     Indication: B-cell lymphoma
     Dosage: 60 MG
     Route: 042
     Dates: start: 20201112, end: 20201112
  4. OMEPRAZOLE [Concomitant]
     Active Substance: OMEPRAZOLE
     Indication: Product used for unknown indication
     Dosage: 10 MG
     Route: 042
  5. MEROPENEM [Concomitant]
     Active Substance: MEROPENEM
     Indication: Enterobacter sepsis
     Dosage: UNK
     Route: 042
     Dates: start: 20201111, end: 20201112
  6. VANCOMYCIN HYDROCHLORIDE [Concomitant]
     Active Substance: VANCOMYCIN HYDROCHLORIDE
     Indication: Enterobacter sepsis
     Dosage: UNK
     Route: 042
     Dates: start: 20201102, end: 20201112
  7. POLARAMINE [Concomitant]
     Active Substance: DEXCHLORPHENIRAMINE MALEATE
     Indication: Chemotherapy
     Dosage: 10 MG
     Route: 042
     Dates: start: 20201112, end: 20201112
  8. AMBISOME [Concomitant]
     Active Substance: AMPHOTERICIN B
     Indication: Aspergillus infection
     Dosage: UNK
     Route: 042
     Dates: start: 20201030, end: 20201113
  9. ONDANSETRON [Concomitant]
     Active Substance: ONDANSETRON
     Indication: Chemotherapy
     Dosage: 8 MG
     Route: 042
     Dates: start: 20201112, end: 20201112
  10. BACTRIM [Concomitant]
     Active Substance: SULFAMETHOXAZOLE\TRIMETHOPRIM
     Indication: Prophylaxis
     Route: 048
  11. METHYLPREDNISOLONE HEMISUCCINATE [Concomitant]
     Active Substance: METHYLPREDNISOLONE HEMISUCCINATE
     Indication: Chemotherapy
     Dosage: 20 MG
     Route: 042
     Dates: start: 20201112, end: 20201112

REACTIONS (3)
  - Death [Fatal]
  - Posterior reversible encephalopathy syndrome [Recovered/Resolved]
  - Overdose [Unknown]

NARRATIVE: CASE EVENT DATE: 20201112
